FAERS Safety Report 7198762-6 (Version None)
Quarter: 2010Q4

REPORT INFORMATION
  Report Type: 
  Country: None (occurrence: None)
  Receive Date: 20101227
  Receipt Date: 20101021
  Transmission Date: 20110411
  Serious: No
  Sender: FDA-Public Use
  Company Number: US-ABBOTT-10P-163-0681314-00

PATIENT
  Age: 63 Year
  Sex: Male
  Weight: 90.8 kg

DRUGS (1)
  1. LUPRON DEPOT [Suspect]
     Indication: PROSTATE CANCER
     Dates: start: 20070701, end: 20091101

REACTIONS (1)
  - ABDOMINAL DISTENSION [None]
